FAERS Safety Report 5812975-4 (Version None)
Quarter: 2008Q3

REPORT INFORMATION
  Report Type: 
  Country: None (occurrence: None)
  Receive Date: 20080717
  Receipt Date: 20070904
  Transmission Date: 20090109
  Serious: No
  Sender: FDA-Public Use
  Company Number: A0677932A

PATIENT
  Sex: Female

DRUGS (1)
  1. NICORETTE (MINT) [Suspect]
     Indication: DRUG USE FOR UNKNOWN INDICATION

REACTIONS (1)
  - DYSGEUSIA [None]
